FAERS Safety Report 9292199 (Version 1)
Quarter: 2013Q2

REPORT INFORMATION
  Report Type: Spontaneous
  Country: US (occurrence: US)
  Receive Date: 20130516
  Receipt Date: 20130516
  Transmission Date: 20140414
  Serious: Yes (Other)
  Sender: FDA-Public Use
  Company Number: US-JNJFOC-20130501018

PATIENT
  Sex: Male

DRUGS (14)
  1. ULTRACET [Suspect]
     Indication: PRODUCT USED FOR UNKNOWN INDICATION
     Route: 065
  2. LEVAQUIN [Suspect]
     Indication: PRODUCT USED FOR UNKNOWN INDICATION
     Route: 065
  3. CYCLOBENZAPRINE [Concomitant]
     Dosage: HALF TABLET EVERY NIGHT AT BED TIME
     Route: 065
  4. ANDROGEL [Concomitant]
     Dosage: IN AM
     Route: 065
  5. RELPAX [Concomitant]
     Dosage: AS NEEDED
     Route: 065
  6. REGLAN [Concomitant]
     Dosage: AS NEEDED
     Route: 065
  7. MOTRIN IB [Concomitant]
     Dosage: AS NEEDED
     Route: 065
  8. PROTONIX [Concomitant]
     Dosage: AM
     Route: 065
  9. POTASSIUM CITRATE [Concomitant]
     Indication: NEPHROLITHIASIS
     Dosage: 520 MG TWO TABLETS TID
     Route: 065
  10. CHLORTHALIDONE [Concomitant]
     Indication: NEPHROLITHIASIS
     Dosage: AM
     Route: 065
  11. CYMBALTA [Concomitant]
     Dosage: AM
     Route: 065
  12. FLORAJEN [Concomitant]
     Indication: PROBIOTIC THERAPY
     Dosage: AM
     Route: 065
  13. WELLBUTRIN XL [Concomitant]
     Dosage: EVERY MORNING
     Route: 048
  14. DEPAKOTE [Concomitant]
     Dosage: EVERY MORNING
     Route: 065

REACTIONS (2)
  - Drug hypersensitivity [Unknown]
  - Adverse reaction [Unknown]
